FAERS Safety Report 9537190 (Version 1)
Quarter: 2013Q3

REPORT INFORMATION
  Report Type: Spontaneous
  Country: US (occurrence: None)
  Receive Date: 20130918
  Receipt Date: 20130918
  Transmission Date: 20140515
  Serious: Yes (Other)
  Sender: FDA-Public Use
  Company Number: None

PATIENT
  Age: 53 Year
  Sex: Female
  Weight: 58.97 kg

DRUGS (2)
  1. ZOLPIDEM ER [Suspect]
     Indication: INSOMNIA
     Dosage: 30 DOSE ONCE DAILY TAKEN BY MOUTH
     Route: 048
     Dates: start: 20130814, end: 20130914
  2. ZOLPIDEM ER [Suspect]
     Indication: EPILEPSY
     Dosage: 30 DOSE ONCE DAILY TAKEN BY MOUTH
     Route: 048
     Dates: start: 20130814, end: 20130914

REACTIONS (5)
  - Product substitution issue [None]
  - Drug effect decreased [None]
  - Product quality issue [None]
  - Poor quality sleep [None]
  - Convulsion [None]
